FAERS Safety Report 5381035-1 (Version None)
Quarter: 2007Q2

REPORT INFORMATION
  Report Type: 
  Country: None (occurrence: None)
  Receive Date: 20070629
  Receipt Date: 20070122
  Transmission Date: 20071010
  Serious: Yes (Hospitalization, Disabling, Other)
  Sender: FDA-Public Use
  Company Number: US200611005286

PATIENT
  Age: 91 Year
  Sex: Female

DRUGS (7)
  1. HUMALOG [Suspect]
     Indication: DIABETES MELLITUS
     Dates: start: 20000601
  2. HUMULIN R [Suspect]
     Indication: DIABETES MELLITUS
     Dates: end: 20000101
  3. HUMULIN N [Suspect]
  4. NOVOLOG [Concomitant]
  5. NOVOLIN R [Concomitant]
  6. NOVOLIN NPH (INSULIN HUMAN INJECTION, ISOPHANE) [Concomitant]
  7. LANTUS [Concomitant]

REACTIONS (15)
  - ANGIOPATHY [None]
  - ASTHENIA [None]
  - BLOOD GLUCOSE DECREASED [None]
  - COMA [None]
  - DECREASED APPETITE [None]
  - DECUBITUS ULCER [None]
  - DEPRESSED LEVEL OF CONSCIOUSNESS [None]
  - FALL [None]
  - GAIT DISTURBANCE [None]
  - GANGRENE [None]
  - GENERAL PHYSICAL HEALTH DETERIORATION [None]
  - HIP FRACTURE [None]
  - IMPAIRED HEALING [None]
  - MOOD ALTERED [None]
  - WRONG DRUG ADMINISTERED [None]
